FAERS Safety Report 7321559-0 (Version None)
Quarter: 2011Q1

REPORT INFORMATION
  Report Type: 
  Country: None (occurrence: None)
  Receive Date: 20110228
  Receipt Date: 20100427
  Transmission Date: 20110831
  Serious: No
  Sender: FDA-Public Use
  Company Number: A0856895A

PATIENT
  Age: 28 Year
  Sex: Female

DRUGS (10)
  1. VALTREX [Suspect]
     Dosage: 500MG PER DAY
     Route: 048
     Dates: start: 20080401, end: 20090301
  2. LO/OVRAL [Concomitant]
  3. DORYX [Concomitant]
  4. AMITRIPTYLINE HCL [Concomitant]
  5. ZOVIRAX [Concomitant]
     Route: 061
  6. MUCINEX [Concomitant]
  7. OLOPATADINE HYDROCHLORIDE [Concomitant]
     Route: 047
  8. PANLOR [Concomitant]
  9. BIRTH CONTROL [Concomitant]
     Route: 048
  10. DERMA-SMOOTHE/FS [Concomitant]

REACTIONS (1)
  - DRUG INEFFECTIVE [None]
